FAERS Safety Report 20551009 (Version 1)
Quarter: 2022Q1

REPORT INFORMATION
  Report Type: Spontaneous
  Country: CA (occurrence: CA)
  Receive Date: 20220304
  Receipt Date: 20220304
  Transmission Date: 20220424
  Serious: Yes (Life-Threatening, Hospitalization)
  Sender: FDA-Public Use
  Company Number: CA-TEVA-2022-CA-2011945

PATIENT
  Age: 15 Year
  Sex: Male
  Weight: 55 kg

DRUGS (6)
  1. METHOTREXATE [Suspect]
     Active Substance: METHOTREXATE
     Route: 065
  2. VINCRISTINE SULFATE [Suspect]
     Active Substance: VINCRISTINE SULFATE
     Route: 065
  3. CYCLOPHOSPHAMIDE [Suspect]
     Active Substance: CYCLOPHOSPHAMIDE
     Route: 065
  4. CYTARABINE [Suspect]
     Active Substance: CYTARABINE
     Route: 065
  5. ONCASPAR [Suspect]
     Active Substance: PEGASPARGASE
     Route: 065
  6. THIOGUANINE [Suspect]
     Active Substance: THIOGUANINE
     Route: 065

REACTIONS (1)
  - Febrile neutropenia [Recovered/Resolved]
